FAERS Safety Report 9314154 (Version 2)
Quarter: 2013Q3

REPORT INFORMATION
  Report Type: Spontaneous
  Country: US (occurrence: US)
  Receive Date: 20130529
  Receipt Date: 20130723
  Transmission Date: 20140515
  Serious: No
  Sender: FDA-Public Use
  Company Number: US-009507513-1305USA014929

PATIENT
  Age: 50 Year
  Sex: Female

DRUGS (1)
  1. NASONEX [Suspect]
     Route: 045

REACTIONS (1)
  - Cataract [Not Recovered/Not Resolved]
